FAERS Safety Report 6825285-3 (Version None)
Quarter: 2010Q3

REPORT INFORMATION
  Report Type: 
  Country: None (occurrence: None)
  Receive Date: 20100708
  Receipt Date: 20070221
  Transmission Date: 20110219
  Serious: No
  Sender: FDA-Public Use
  Company Number: US-PFIZER INC-2007001553

PATIENT
  Sex: Female
  Weight: 117.93 kg

DRUGS (4)
  1. CHANTIX [Suspect]
     Indication: SMOKING CESSATION THERAPY
     Dates: start: 20061219, end: 20061201
  2. LITHIUM CARBONATE [Concomitant]
  3. TRAZODONE [Concomitant]
  4. PREVACID [Concomitant]

REACTIONS (6)
  - ABDOMINAL PAIN UPPER [None]
  - HYPERSENSITIVITY [None]
  - PRURITUS [None]
  - RETCHING [None]
  - SWELLING [None]
  - VOMITING [None]
